FAERS Safety Report 7329487-1 (Version None)
Quarter: 2011Q1

REPORT INFORMATION
  Report Type: 
  Country: None (occurrence: None)
  Receive Date: 20110225
  Receipt Date: 20110225
  Transmission Date: 20110831
  Serious: Yes (Life-Threatening)
  Sender: FDA-Public Use
  Company Number: None

PATIENT
  Age: 81 Year
  Sex: Female
  Weight: 54.4316 kg

DRUGS (2)
  1. DORIBAX [Suspect]
     Indication: URINARY TRACT INFECTION
     Dates: start: 20110212, end: 20110215
  2. DORIBAX [Suspect]
     Indication: PNEUMONIA
     Dates: start: 20110212, end: 20110215

REACTIONS (1)
  - TORSADE DE POINTES [None]
